FAERS Safety Report 19642648 (Version 6)
Quarter: 2021Q4

REPORT INFORMATION
  Report Type: Report from Study
  Country: US (occurrence: US)
  Receive Date: 20210731
  Receipt Date: 20211015
  Transmission Date: 20220303
  Serious: Yes (Other)
  Sender: FDA-Public Use
  Company Number: NVSC2021US172074

PATIENT
  Sex: Male

DRUGS (4)
  1. ENTRESTO [Suspect]
     Active Substance: SACUBITRIL\VALSARTAN
     Indication: Cardiac failure chronic
     Dosage: 1 DF (49/51 MG), BID
     Route: 065
  2. METFORMIN [Suspect]
     Active Substance: METFORMIN HYDROCHLORIDE
     Indication: Product used for unknown indication
     Dosage: UNK
     Route: 065
  3. POTASSIUM [Suspect]
     Active Substance: POTASSIUM
     Indication: Product used for unknown indication
     Dosage: 5 DF
     Route: 065
  4. POTASSIUM [Suspect]
     Active Substance: POTASSIUM
     Dosage: 3 DF
     Route: 065

REACTIONS (5)
  - Weight increased [Unknown]
  - Blood potassium increased [Unknown]
  - Heart rate abnormal [Not Recovered/Not Resolved]
  - Stress [Unknown]
  - Sleep disorder [Unknown]
